FAERS Safety Report 16067361 (Version 1)
Quarter: 2019Q1

REPORT INFORMATION
  Report Type: Spontaneous
  Country: US (occurrence: US)
  Receive Date: 20190313
  Receipt Date: 20190313
  Transmission Date: 20190418
  Serious: No
  Sender: FDA-Public Use
  Company Number: US-EMCURE PHARMS-2018HTG00420

PATIENT

DRUGS (1)
  1. BICNU [Suspect]
     Active Substance: CARMUSTINE
     Dosage: UNK
     Route: 042

REACTIONS (1)
  - Administration site pain [Recovered/Resolved]
